FAERS Safety Report 5216967-8 (Version None)
Quarter: 2007Q1

REPORT INFORMATION
  Report Type: 
  Country: None (occurrence: None)
  Receive Date: 20070119
  Receipt Date: 20070109
  Transmission Date: 20070707
  Serious: Yes (Death)
  Sender: FDA-Public Use
  Company Number: 2007SP000405

PATIENT
  Age: 79 Year
  Sex: Male

DRUGS (3)
  1. EULEXINE (FLUTAMIDE) (FLUTAMIDE) [Suspect]
     Indication: PROSTATE CANCER
     Dosage: UNK; PO
     Route: 048
     Dates: start: 20060501, end: 20061204
  2. VASTAREL (CON.) [Concomitant]
  3. APROVEL (CON.) [Concomitant]

REACTIONS (4)
  - CYTOLYTIC HEPATITIS [None]
  - DRUG INTOLERANCE [None]
  - DYSPEPSIA [None]
  - HEPATIC FAILURE [None]
